FAERS Safety Report 7961196 (Version 2)
Quarter: 2012Q4

REPORT INFORMATION
  Report Type: 
  Country: US (occurrence: US)
  Receive Date: 20110525
  Receipt Date: 20121113
  Transmission Date: 20130627
  Serious: No
  Sender: FDA-Public Use
  Company Number: US-AMGEN-USASP2010011834

PATIENT
  Sex: Female

DRUGS (12)
  1. ARANESP [Suspect]
     Indication: RENAL FAILURE CHRONIC
     Dosage: 200 mug, qwk
     Route: 058
     Dates: start: 20101111, end: 20111115
  2. LABETALOL [Concomitant]
     Dosage: 1 mg, qd
  3. NORVASC [Concomitant]
     Dosage: 1 mg, qd
  4. OMEPRAZOLE [Concomitant]
     Dosage: 1 mg, qd
  5. METHOCARBAMOL [Concomitant]
     Dosage: UNK
  6. FERROUS SULFATE [Concomitant]
     Dosage: 1 mg, qd
  7. ALLEGRA [Concomitant]
     Dosage: UNK
  8. DARVOCET [Concomitant]
  9. PROAIR [Concomitant]
  10. LORAZEPAM [Concomitant]
  11. SIMVASTATIN [Concomitant]
  12. TRAMADOL [Concomitant]

REACTIONS (1)
  - Haemoglobin decreased [Recovered/Resolved]
